FAERS Safety Report 9736120 (Version 1)
Quarter: 2013Q4

REPORT INFORMATION
  Report Type: Spontaneous
  Country: US (occurrence: None)
  Receive Date: 20131205
  Receipt Date: 20131205
  Transmission Date: 20140711
  Serious: Yes (Other)
  Sender: FDA-Public Use
  Company Number: None

PATIENT
  Age: 51 Year
  Sex: 0

DRUGS (3)
  1. INSULIN [Suspect]
  2. INSULIN PUMP [Concomitant]
  3. MEDTRONIC NEEDLES [Concomitant]

REACTIONS (3)
  - Cellulitis [None]
  - Medical device site reaction [None]
  - Abscess [None]
